FAERS Safety Report 25831751 (Version 1)
Quarter: 2025Q3

REPORT INFORMATION
  Report Type: Spontaneous
  Country: GB (occurrence: GB)
  Receive Date: 20250922
  Receipt Date: 20250922
  Transmission Date: 20251020
  Serious: Yes (Other)
  Sender: PFIZER
  Company Number: GB-ADVANZ PHARMA-202509007996

PATIENT
  Sex: Female

DRUGS (8)
  1. METHOTREXATE SODIUM [Suspect]
     Active Substance: METHOTREXATE SODIUM
  2. LANSOPRAZOLE [Suspect]
     Active Substance: LANSOPRAZOLE
  3. ACETAMINOPHEN\CODEINE PHOSPHATE [Suspect]
     Active Substance: ACETAMINOPHEN\CODEINE PHOSPHATE
  4. COCODAMOL [Suspect]
     Active Substance: ACETAMINOPHEN\CODEINE PHOSPHATE
  5. ACETAMINOPHEN [Suspect]
     Active Substance: ACETAMINOPHEN
  6. NAPROXEN [Suspect]
     Active Substance: NAPROXEN
  7. SENOKOT [Suspect]
     Active Substance: SENNOSIDES
  8. LACTULOSE [Suspect]
     Active Substance: LACTULOSE

REACTIONS (11)
  - Suicidal ideation [Unknown]
  - Abdominal distension [Unknown]
  - Bladder irritation [Unknown]
  - Gastrooesophageal reflux disease [Unknown]
  - Impaired healing [Unknown]
  - Gastrointestinal disorder [Unknown]
  - Constipation [Unknown]
  - Depression [Unknown]
  - Malaise [Unknown]
  - Diarrhoea [Unknown]
  - Fatigue [Unknown]
